FAERS Safety Report 4554564-8 (Version None)
Quarter: 2005Q1

REPORT INFORMATION
  Report Type: 
  Country: None (occurrence: None)
  Receive Date: 20050114
  Receipt Date: 20040322
  Transmission Date: 20050727
  Serious: Yes (Other)
  Sender: FDA-Public Use
  Company Number: PHBS2004US03932

PATIENT
  Age: 74 Year
  Sex: Female

DRUGS (2)
  1. HYDRALAZINE HCL [Suspect]
  2. FUROSEMIDE (NGX) (FUROSEMIDE) [Suspect]

REACTIONS (3)
  - GASTRIC POLYPS [None]
  - GASTRIC ULCER [None]
  - GASTROINTESTINAL TRACT MUCOSAL PIGMENTATION [None]
